FAERS Safety Report 16974906 (Version 4)
Quarter: 2020Q1

REPORT INFORMATION
  Report Type: Report from Study
  Country: US (occurrence: US)
  Receive Date: 20191030
  Receipt Date: 20200206
  Transmission Date: 20200409
  Serious: Yes (Hospitalization)
  Sender: FDA-Public Use
  Company Number: US-ACTELION-A-US2019-197502

PATIENT
  Sex: Female
  Weight: 92.52 kg

DRUGS (5)
  1. OXYGEN. [Concomitant]
     Active Substance: OXYGEN
     Dosage: 4 L, PER MIN AT REST
  2. OPSUMIT [Suspect]
     Active Substance: MACITENTAN
     Indication: PULMONARY ARTERIAL HYPERTENSION
     Dosage: 10 MG, QD
     Route: 048
  3. TADALAFIL. [Concomitant]
     Active Substance: TADALAFIL
  4. XARELTO [Concomitant]
     Active Substance: RIVAROXABAN
  5. OXYGEN. [Concomitant]
     Active Substance: OXYGEN
     Dosage: 5 L, PER MIN WITH ACTIVITIES

REACTIONS (10)
  - Abdominal distension [Unknown]
  - Limb discomfort [Unknown]
  - Dyspnoea [Unknown]
  - Headache [Unknown]
  - Dizziness [Unknown]
  - Constipation [Unknown]
  - Hospitalisation [Unknown]
  - Therapy non-responder [Unknown]
  - Nausea [Unknown]
  - Syncope [Unknown]
